FAERS Safety Report 12713872 (Version 2)
Quarter: 2018Q1

REPORT INFORMATION
  Report Type: Spontaneous
  Country: MX (occurrence: MX)
  Receive Date: 20160905
  Receipt Date: 20180131
  Transmission Date: 20180508
  Serious: Yes (Other)
  Sender: FDA-Public Use
  Company Number: MX-ROCHE-1822965

PATIENT
  Sex: Female
  Weight: 62 kg

DRUGS (7)
  1. PEGASYS [Suspect]
     Active Substance: PEGINTERFERON ALFA-2A
     Route: 058
     Dates: start: 2016, end: 201609
  2. ACETAMINOPHEN. [Concomitant]
     Active Substance: ACETAMINOPHEN
     Indication: MIGRAINE
     Route: 065
     Dates: end: 2016
  3. ERGOTAMINE [Concomitant]
     Active Substance: CAFFEINE\ERGOTAMINE\ERGOTAMINE TARTRATE
     Indication: MIGRAINE
     Route: 065
     Dates: end: 2016
  4. PEGASYS [Suspect]
     Active Substance: PEGINTERFERON ALFA-2A
     Indication: HEPATITIS C
     Route: 058
     Dates: end: 2016
  5. COPEGUS [Suspect]
     Active Substance: RIBAVIRIN
     Indication: HEPATITIS C
     Route: 065
     Dates: end: 2016
  6. KETOROLAC [Concomitant]
     Active Substance: KETOROLAC\KETOROLAC TROMETHAMINE
     Indication: MIGRAINE
     Route: 058
     Dates: start: 2016
  7. COPEGUS [Suspect]
     Active Substance: RIBAVIRIN
     Route: 065
     Dates: start: 2016, end: 201609

REACTIONS (11)
  - Weight decreased [Recovered/Resolved]
  - Dry skin [Recovering/Resolving]
  - Abdominal pain upper [Recovering/Resolving]
  - Pain [Recovered/Resolved]
  - Insomnia [Recovering/Resolving]
  - Dizziness [Recovering/Resolving]
  - Migraine [Recovered/Resolved]
  - Alopecia [Recovering/Resolving]
  - Vomiting [Recovering/Resolving]
  - Red blood cell abnormality [Recovered/Resolved]
  - Anaemia [Recovered/Resolved]
